APPROVED DRUG PRODUCT: PENNSAID
Active Ingredient: DICLOFENAC SODIUM
Strength: 1.5% **Federal Register determination that product was not discontinued or withdrawn for safety or effectiveness reasons**
Dosage Form/Route: SOLUTION;TOPICAL
Application: N020947 | Product #001
Applicant: NUVO PHARMACEUTICALS INC
Approved: Nov 4, 2009 | RLD: Yes | RS: No | Type: DISCN

PATENTS:
Patent 8217078 | Expires: Jul 10, 2029
Patent 8546450 | Expires: Aug 9, 2030
Patent 8618164 | Expires: Jul 10, 2029
Patent 8546450 | Expires: Aug 9, 2030
Patent 8741956 | Expires: Jul 10, 2029